FAERS Safety Report 7868944 (Version 6)
Quarter: 2013Q2

REPORT INFORMATION
  Report Type: Spontaneous
  Country: US (occurrence: US)
  Receive Date: 20110324
  Receipt Date: 20130402
  Transmission Date: 20140414
  Serious: Yes (Hospitalization)
  Sender: FDA-Public Use
  Company Number: US-BAYER-2011-023909

PATIENT
  Age: 42 Year
  Sex: Female
  Weight: 80.27 kg

DRUGS (8)
  1. YASMIN [Suspect]
     Dosage: UNK
     Dates: start: 20040408, end: 20050121
  2. OCELLA [Suspect]
     Dosage: UNK
     Route: 048
     Dates: start: 20050121, end: 2006
  3. TOPAMAX [Concomitant]
     Indication: PRODUCT USED FOR UNKNOWN INDICATION
     Dosage: UNK
     Dates: start: 2008, end: 2009
  4. METFORMIN [Concomitant]
     Indication: DIABETES MELLITUS
     Dosage: UNK
     Dates: start: 1998
  5. GABAPENTIN [Concomitant]
  6. CITALOPRAM [Concomitant]
  7. AMARYL [Concomitant]
  8. JANUVIA [Concomitant]

REACTIONS (4)
  - Gallbladder disorder [None]
  - Cholecystitis chronic [None]
  - Injury [None]
  - Pain [None]
